FAERS Safety Report 15335802 (Version 1)
Quarter: 2018Q3

REPORT INFORMATION
  Report Type: Spontaneous
  Country: US (occurrence: US)
  Receive Date: 20180827
  Receipt Date: 20180827
  Transmission Date: 20181010
  Serious: No
  Sender: FDA-Public Use
  Company Number: None

PATIENT
  Age: 36 Year

DRUGS (1)
  1. FIASP [Suspect]
     Active Substance: INSULIN ASPART
     Indication: BLOOD GLUCOSE INCREASED
     Route: 058
     Dates: start: 20180614, end: 20180827

REACTIONS (3)
  - Injection site pain [None]
  - Injection site pruritus [None]
  - Drug effect decreased [None]

NARRATIVE: CASE EVENT DATE: 20180827
